FAERS Safety Report 19363190 (Version 1)
Quarter: 2021Q2

REPORT INFORMATION
  Report Type: Report from Study
  Country: KR (occurrence: KR)
  Receive Date: 20210603
  Receipt Date: 20210603
  Transmission Date: 20210717
  Serious: Yes (Other)
  Sender: FDA-Public Use
  Company Number: KR-AMGEN INC.-KORCT2021084141

PATIENT
  Age: 67 Year
  Sex: Male

DRUGS (2)
  1. FILGRASTIM [Suspect]
     Active Substance: FILGRASTIM
     Indication: PRODUCT USED FOR UNKNOWN INDICATION
     Dosage: 300 UNK
     Route: 065
     Dates: start: 20110819, end: 20110820
  2. FILGRASTIM [Suspect]
     Active Substance: FILGRASTIM
     Dosage: 300 UNK
     Route: 065
     Dates: start: 20110822, end: 20110822

REACTIONS (22)
  - Aspartate aminotransferase increased [Recovered/Resolved]
  - Arthralgia [Not Recovered/Not Resolved]
  - Gingival bleeding [Recovered/Resolved]
  - Neck pain [Not Recovered/Not Resolved]
  - Dizziness [Unknown]
  - Chest pain [Recovered/Resolved]
  - Abdominal distension [Recovered/Resolved]
  - Constipation [Unknown]
  - Vomiting [Recovered/Resolved]
  - Generalised oedema [Recovered/Resolved]
  - Nausea [Recovered/Resolved]
  - Thrombocytopenia [Recovered/Resolved]
  - Tinnitus [Unknown]
  - Oropharyngeal pain [Recovered/Resolved]
  - Pruritus [Recovered/Resolved]
  - Dysuria [Recovered/Resolved]
  - Hyperbilirubinaemia [Recovered/Resolved]
  - Pollakiuria [Unknown]
  - Dysphagia [Recovered/Resolved]
  - Dacryostenosis acquired [Unknown]
  - Dyspnoea [Recovered/Resolved]
  - Anaemia [Recovered/Resolved]

NARRATIVE: CASE EVENT DATE: 20110928
